FAERS Safety Report 16158221 (Version 2)
Quarter: 2019Q2

REPORT INFORMATION
  Report Type: Report from Study
  Country: NL (occurrence: NL)
  Receive Date: 20190404
  Receipt Date: 20190419
  Transmission Date: 20190711
  Serious: No
  Sender: FDA-Public Use
  Company Number: NL-GILEAD-2019-0399835

PATIENT
  Age: 63 Year
  Sex: Male

DRUGS (1)
  1. AXICABTAGENE CILOLEUCEL [Suspect]
     Active Substance: AXICABTAGENE CILOLEUCEL
     Indication: B-CELL LYMPHOMA
     Dosage: UNK
     Route: 042

REACTIONS (7)
  - Limb injury [Unknown]
  - Ill-defined disorder [Unknown]
  - Neutropenia [Unknown]
  - Cytokine release syndrome [Unknown]
  - Neurological symptom [Unknown]
  - Shock [Unknown]
  - Syncope [Unknown]
